FAERS Safety Report 9776717 (Version 2)
Quarter: 2013Q4

REPORT INFORMATION
  Report Type: Spontaneous
  Country: CH (occurrence: CH)
  Receive Date: 20131220
  Receipt Date: 20131227
  Transmission Date: 20140711
  Serious: Yes (Life-Threatening)
  Sender: FDA-Public Use
  Company Number: CH-ASTRAZENECA-2013SE92060

PATIENT
  Age: 79 Year
  Sex: Male

DRUGS (6)
  1. CASODEX [Suspect]
     Indication: PROSTATE CANCER
     Route: 048
     Dates: start: 201305, end: 201306
  2. CASODEX [Suspect]
     Indication: PROSTATE CANCER
     Route: 048
     Dates: start: 201307, end: 201311
  3. LAXOBERON [Concomitant]
     Route: 042
  4. TORASEMIDE [Concomitant]
     Route: 048
  5. CALCIMAGON D3 [Concomitant]
     Route: 048
  6. TRANSTEC [Concomitant]
     Dosage: 1 DF, 1 PER 3 DAYS
     Route: 023

REACTIONS (1)
  - Cardiac failure [Recovered/Resolved]
